FAERS Safety Report 5527325-0 (Version None)
Quarter: 2007Q4

REPORT INFORMATION
  Report Type: 
  Country: None (occurrence: None)
  Receive Date: 20071128
  Receipt Date: 20071121
  Transmission Date: 20080405
  Serious: Yes (Other)
  Sender: FDA-Public Use
  Company Number: B0496353A

PATIENT
  Sex: Male

DRUGS (3)
  1. LAMIVUDINE [Suspect]
     Dosage: 300MG PER DAY
  2. ZIDOVUDINE [Suspect]
     Dosage: 500MG PER DAY
  3. VIRAMUNE [Suspect]
     Indication: HIV INFECTION
     Dosage: 400MG PER DAY

REACTIONS (1)
  - SMALL FOR DATES BABY [None]
